FAERS Safety Report 8087508-5 (Version None)
Quarter: 2012Q1

REPORT INFORMATION
  Report Type: 
  Country: None (occurrence: None)
  Receive Date: 20120128
  Receipt Date: 20110503
  Transmission Date: 20120608
  Serious: No
  Sender: FDA-Public Use
  Company Number: US-ABBOTT-11P-163-0722996-00

PATIENT
  Sex: Female
  Weight: 74.91 kg

DRUGS (4)
  1. VICODIN [Concomitant]
     Indication: PAIN
  2. ONDANSETRON HCL [Concomitant]
     Indication: NAUSEA
  3. SULFASALAZINE [Concomitant]
     Indication: CROHN'S DISEASE
  4. HUMIRA [Suspect]
     Indication: CROHN'S DISEASE
     Dates: start: 20110405

REACTIONS (6)
  - INJECTION SITE URTICARIA [None]
  - COLD SWEAT [None]
  - INJECTION SITE PAIN [None]
  - DIZZINESS [None]
  - NAUSEA [None]
  - FATIGUE [None]
